FAERS Safety Report 10609975 (Version 2)
Quarter: 2015Q2

REPORT INFORMATION
  Report Type: Spontaneous
  Country: BR (occurrence: BR)
  Receive Date: 20141126
  Receipt Date: 20150403
  Transmission Date: 20150821
  Serious: Yes (Hospitalization, Other)
  Sender: FDA-Public Use
  Company Number: BR-PFIZER INC-2014324442

PATIENT
  Age: 63 Year
  Sex: Female
  Weight: 65 kg

DRUGS (9)
  1. LYRICA [Suspect]
     Active Substance: PREGABALIN
     Indication: NEURALGIA
     Dosage: UNK
  2. DIOVAN AMLO [Concomitant]
     Active Substance: AMLODIPINE\VALSARTAN
     Indication: HYPERTENSION
     Dosage: UNSPECIFIED DOSE, 2X/DAY
     Dates: start: 2014
  3. DONAREN [Concomitant]
     Active Substance: TRAZODONE HYDROCHLORIDE
     Dosage: UNSPECIFIED DOSE, 1X/DAY
  4. PANTOPRAZOLE [Concomitant]
     Active Substance: PANTOPRAZOLE SODIUM
     Indication: ULCER
     Dosage: UNK
     Dates: start: 2008
  5. CLOPIDOGREL SULFATE [Concomitant]
     Active Substance: CLOPIDOGREL BISULFATE
     Indication: BLOOD DISORDER
     Dosage: UNSPECIFIED DOSE, 1X/DAY
  6. VENLAFAXINE [Concomitant]
     Active Substance: VENLAFAXINE HYDROCHLORIDE
     Indication: DEPRESSION
     Dosage: UNK
     Dates: start: 2004
  7. LYRICA [Suspect]
     Active Substance: PREGABALIN
     Dosage: 1 TABLET (AS REPORTED) OF STRENGTH 75 MG, EVERY 12 HOURS
     Route: 048
     Dates: start: 2012
  8. ALPRAZOLAM. [Concomitant]
     Active Substance: ALPRAZOLAM
     Indication: RELAXATION THERAPY
     Dosage: UNSPECIFIED DOSE, 2X/DAY
  9. LYRICA [Suspect]
     Active Substance: PREGABALIN
     Dosage: UNK
     Route: 048
     Dates: start: 2014

REACTIONS (8)
  - Gait disturbance [Unknown]
  - Spinal fracture [Unknown]
  - Pain [Unknown]
  - Fall [Unknown]
  - Paralysis [Not Recovered/Not Resolved]
  - Activities of daily living impaired [Unknown]
  - Upper limb fracture [Unknown]
  - Spinal disorder [Unknown]

NARRATIVE: CASE EVENT DATE: 2004
